FAERS Safety Report 12255257 (Version 1)
Quarter: 2016Q2

REPORT INFORMATION
  Report Type: Spontaneous
  Country: US (occurrence: US)
  Receive Date: 20160412
  Receipt Date: 20160412
  Transmission Date: 20160815
  Serious: No
  Sender: FDA-Public Use
  Company Number: US-AMGEN-USASP2016043636

PATIENT
  Age: 57 Year
  Sex: Female

DRUGS (1)
  1. ENBREL [Suspect]
     Active Substance: ETANERCEPT
     Indication: PSORIATIC ARTHROPATHY
     Dosage: UNK UNK, QWK
     Route: 065

REACTIONS (6)
  - Device issue [Unknown]
  - Injection site warmth [Unknown]
  - Device leakage [Unknown]
  - Device use error [Unknown]
  - Injection site reaction [Unknown]
  - Influenza [Unknown]

NARRATIVE: CASE EVENT DATE: 20160405
